FAERS Safety Report 8772723 (Version 7)
Quarter: 2013Q3

REPORT INFORMATION
  Report Type: Spontaneous
  Country: US (occurrence: US)
  Receive Date: 20120905
  Receipt Date: 20130802
  Transmission Date: 20140515
  Serious: Yes (Other)
  Sender: FDA-Public Use
  Company Number: US-009507513-1208USA009226

PATIENT
  Sex: Female
  Weight: 45.35 kg

DRUGS (7)
  1. PEGINTRON [Suspect]
     Indication: HEPATITIS C
     Dosage: REDIPEN,80 MICROGRAMS / 0.5 CC, UNK
     Dates: start: 20120817
  2. PEGINTRON [Suspect]
     Dosage: REDIPEN,120 MICROGRAM/ 0.5 CC, UNK
     Dates: start: 20120817, end: 20120823
  3. PEGINTRON [Suspect]
     Dosage: VIAL
     Dates: start: 20020202
  4. REBETOL [Suspect]
     Indication: HEPATITIS C
     Dosage: UNK
     Route: 048
     Dates: start: 20120817
  5. REBETOL [Suspect]
     Dosage: UNK
     Route: 048
     Dates: start: 20120817, end: 20120823
  6. REBETOL [Suspect]
     Dosage: UNK
     Route: 048
     Dates: start: 20020202
  7. VICTRELIS [Suspect]
     Indication: HEPATITIS C
     Dosage: UNK
     Route: 048
     Dates: start: 20120928

REACTIONS (37)
  - Haemoglobin decreased [Unknown]
  - Appetite disorder [Recovering/Resolving]
  - White blood cell count decreased [Unknown]
  - Nausea [Unknown]
  - Fatigue [Unknown]
  - Fatigue [Unknown]
  - Nausea [Unknown]
  - Nausea [Not Recovered/Not Resolved]
  - Irritability [Unknown]
  - Fatigue [Not Recovered/Not Resolved]
  - Dysgeusia [Not Recovered/Not Resolved]
  - Nausea [Unknown]
  - Vomiting [Unknown]
  - Flatulence [Unknown]
  - Decreased appetite [Unknown]
  - White blood cell count decreased [Unknown]
  - Fatigue [Unknown]
  - Nausea [Unknown]
  - Weight decreased [Unknown]
  - Decreased appetite [Unknown]
  - Fatigue [Unknown]
  - Myalgia [Unknown]
  - Depression [Unknown]
  - Heart rate increased [Unknown]
  - Myalgia [Unknown]
  - Back pain [Unknown]
  - Anxiety [Unknown]
  - Nausea [Unknown]
  - Decreased appetite [Unknown]
  - Anaemia [Unknown]
  - Haemoglobin decreased [Unknown]
  - Leukopenia [Unknown]
  - White blood cell count decreased [Unknown]
  - Fatigue [Unknown]
  - Decreased appetite [Unknown]
  - Weight decreased [Unknown]
  - Dysgeusia [Not Recovered/Not Resolved]
